FAERS Safety Report 25928270 (Version 2)
Quarter: 2025Q4

REPORT INFORMATION
  Report Type: Spontaneous
  Country: GB (occurrence: GB)
  Receive Date: 20251016
  Receipt Date: 20251104
  Transmission Date: 20260117
  Serious: Yes (Other)
  Sender: AUROBINDO
  Company Number: GB-MHRA-MED-202510041137563050-TMLRG

PATIENT
  Age: 69 Year
  Sex: Female
  Weight: 80 kg

DRUGS (1)
  1. PRAMIPEXOLE [Suspect]
     Active Substance: PRAMIPEXOLE
     Indication: Restless legs syndrome
     Dosage: 400 MILLIGRAM, ONCE A DAY ( 5 X 088MG NOCTE)
     Route: 065
     Dates: end: 20240901

REACTIONS (3)
  - Lip cosmetic procedure [Recovered/Resolved with Sequelae]
  - Restless leg augmentation syndrome [Recovered/Resolved with Sequelae]
  - Medication error [Unknown]
